FAERS Safety Report 21740651 (Version 1)
Quarter: 2022Q4

REPORT INFORMATION
  Report Type: Report from Study
  Country: CA (occurrence: CA)
  Receive Date: 20221216
  Receipt Date: 20221216
  Transmission Date: 20230113
  Serious: Yes (Hospitalization, Other)
  Sender: FDA-Public Use
  Company Number: CA-BAYER-2022A168153

PATIENT
  Age: 53 Year
  Sex: Female

DRUGS (13)
  1. NAPROXEN [Suspect]
     Active Substance: NAPROXEN
  2. ACETAMINOPHEN [Concomitant]
     Active Substance: ACETAMINOPHEN
  3. ACTEMRA [Suspect]
     Active Substance: TOCILIZUMAB
  4. OMEPRAZOLE [Suspect]
     Active Substance: OMEPRAZOLE
  5. TYLENOL [Concomitant]
     Active Substance: ACETAMINOPHEN
  6. XANTOFYL PALMITATE [Concomitant]
     Active Substance: XANTOFYL PALMITATE
  7. BETA CAROTENE [Concomitant]
     Active Substance: BETA CAROTENE
  8. NAPROXEN [Concomitant]
     Active Substance: NAPROXEN
  9. VITAMIN C [Concomitant]
     Active Substance: ASCORBIC ACID
  10. LOSEC [Concomitant]
     Active Substance: OMEPRAZOLE
  11. AZATHIOPRINE [Concomitant]
     Active Substance: AZATHIOPRINE
  12. FOLIC ACID [Suspect]
     Active Substance: FOLIC ACID
  13. PANTOPRAZOLE [Suspect]
     Active Substance: PANTOPRAZOLE

REACTIONS (33)
  - Heart rate decreased [Not Recovered/Not Resolved]
  - Upper respiratory tract infection [Not Recovered/Not Resolved]
  - Influenza [Not Recovered/Not Resolved]
  - Arthropod bite [Not Recovered/Not Resolved]
  - Nasopharyngitis [Not Recovered/Not Resolved]
  - Headache [Not Recovered/Not Resolved]
  - Infusion related reaction [Not Recovered/Not Resolved]
  - Oropharyngeal pain [Not Recovered/Not Resolved]
  - Joint swelling [Not Recovered/Not Resolved]
  - Pain [Not Recovered/Not Resolved]
  - Flatulence [Not Recovered/Not Resolved]
  - Malaise [Not Recovered/Not Resolved]
  - Localised infection [Not Recovered/Not Resolved]
  - Fatigue [Not Recovered/Not Resolved]
  - Dizziness [Not Recovered/Not Resolved]
  - Injection site reaction [Not Recovered/Not Resolved]
  - Stomatitis [Not Recovered/Not Resolved]
  - Impaired healing [Not Recovered/Not Resolved]
  - Tongue injury [Not Recovered/Not Resolved]
  - Bruxism [Not Recovered/Not Resolved]
  - Mouth injury [Not Recovered/Not Resolved]
  - Insomnia [Not Recovered/Not Resolved]
  - Device loosening [Not Recovered/Not Resolved]
  - Drug ineffective [Not Recovered/Not Resolved]
  - Medical device site joint infection [Not Recovered/Not Resolved]
  - Large intestinal obstruction [Not Recovered/Not Resolved]
  - Conjunctivitis [Not Recovered/Not Resolved]
  - Hernia [Not Recovered/Not Resolved]
  - Arthropathy [Not Recovered/Not Resolved]
  - Herpes zoster [Not Recovered/Not Resolved]
  - Blood pressure increased [Not Recovered/Not Resolved]
  - Ingrowing nail [Not Recovered/Not Resolved]
  - Cough [Not Recovered/Not Resolved]
